FAERS Safety Report 6778972-X (Version None)
Quarter: 2010Q2

REPORT INFORMATION
  Report Type: 
  Country: None (occurrence: None)
  Receive Date: 20100618
  Receipt Date: 20100611
  Transmission Date: 20101027
  Serious: Yes (Life-Threatening, Hospitalization)
  Sender: FDA-Public Use
  Company Number: BR-ELI_LILLY_AND_COMPANY-BR201006003825

PATIENT
  Sex: Female
  Weight: 60 kg

DRUGS (2)
  1. GEMCITABINE HYDROCHLORIDE [Suspect]
     Indication: BREAST CANCER METASTATIC
     Dosage: 1250 MG/M2, OTHER
     Route: 042
     Dates: start: 20091124
  2. PACLITAXEL [Suspect]
     Indication: BREAST CANCER METASTATIC
     Dosage: 175 MG/M2, OTHER
     Route: 042
     Dates: start: 20091124

REACTIONS (1)
  - PERICARDIAL EFFUSION [None]
